FAERS Safety Report 21994193 (Version 2)
Quarter: 2023Q1

REPORT INFORMATION
  Report Type: Report from Study
  Country: EG (occurrence: EG)
  Receive Date: 20230215
  Receipt Date: 20230314
  Transmission Date: 20230417
  Serious: Yes (Other)
  Sender: FDA-Public Use
  Company Number: EG-002147023-NVSC2023EG031941

PATIENT
  Age: 51 Year
  Sex: Female

DRUGS (12)
  1. HYRIMOZ [Suspect]
     Active Substance: ADALIMUMAB-ADAZ
     Indication: Rheumatoid arthritis
     Dosage: 40 MG, (EVERY 15 DAY)
     Route: 058
     Dates: start: 20220316, end: 20220615
  2. HYRIMOZ [Suspect]
     Active Substance: ADALIMUMAB-ADAZ
     Dosage: 40 MG, (EVERY 15 DAY) 1 MONTHS AGO
     Route: 058
  3. METHOTREXATE [Suspect]
     Active Substance: METHOTREXATE
     Indication: Rheumatoid arthritis
     Dosage: QW (6 TABLETS)
     Route: 048
     Dates: start: 202202
  4. CYMBALTA [Concomitant]
     Active Substance: DULOXETINE HYDROCHLORIDE
     Indication: Depression
     Dosage: 1 DOSAGE FORM (1 TAB) (INTERMITTENT )
     Route: 065
     Dates: start: 2016
  5. CYMBALTA [Concomitant]
     Active Substance: DULOXETINE HYDROCHLORIDE
     Dosage: QD
     Route: 065
     Dates: start: 202207
  6. AMITRIPTYLINE HYDROCHLORIDE [Concomitant]
     Active Substance: AMITRIPTYLINE HYDROCHLORIDE
     Indication: Depression
     Dosage: 1 DOSAGE FORM (1 TAB EVENING) (INTERMITTENT )
     Route: 065
     Dates: start: 2016
  7. AMITRIPTYLINE HYDROCHLORIDE [Concomitant]
     Active Substance: AMITRIPTYLINE HYDROCHLORIDE
     Dosage: QD
     Route: 065
     Dates: start: 202207
  8. LUSTRAL [Concomitant]
     Active Substance: SERTRALINE HYDROCHLORIDE
     Indication: Depression
     Dosage: 1 DOSAGE FORM (1 TAB) (INTERMITTENT)
     Route: 065
     Dates: start: 2016
  9. LUSTRAL [Concomitant]
     Active Substance: SERTRALINE HYDROCHLORIDE
     Dosage: UNK, QOD
     Route: 065
     Dates: start: 202207
  10. SOLUPRED [Concomitant]
     Indication: Rheumatoid arthritis
     Dosage: UNK, QD (EXCEPT SUNDAY AND THURSDAY)
     Route: 065
     Dates: start: 201910
  11. SOLUPRED [Concomitant]
     Dosage: 1 DOSAGE FORM, QD (ONE TAB) (EXCEPT SUNDAY AND THURSDAY)
     Route: 065
     Dates: start: 202203
  12. DICLOFENAC [Concomitant]
     Active Substance: DICLOFENAC
     Indication: Rheumatoid arthritis
     Dosage: UNK, PRN (ONCE DAILY AS NEEDED)
     Route: 065
     Dates: start: 202207

REACTIONS (13)
  - Red blood cell sedimentation rate increased [Not Recovered/Not Resolved]
  - C-reactive protein increased [Not Recovered/Not Resolved]
  - Hepatic enzyme increased [Recovering/Resolving]
  - Bone pain [Not Recovered/Not Resolved]
  - Arthralgia [Not Recovered/Not Resolved]
  - Movement disorder [Not Recovered/Not Resolved]
  - Fatigue [Not Recovered/Not Resolved]
  - Decreased immune responsiveness [Not Recovered/Not Resolved]
  - Oral pain [Not Recovered/Not Resolved]
  - Stomatitis [Not Recovered/Not Resolved]
  - Lymphadenopathy [Unknown]
  - Dysphonia [Unknown]
  - Drug ineffective [Unknown]

NARRATIVE: CASE EVENT DATE: 20220301
